FAERS Safety Report 12210338 (Version 1)
Quarter: 2016Q1

REPORT INFORMATION
  Report Type: Spontaneous
  Country: US (occurrence: US)
  Receive Date: 20160325
  Receipt Date: 20160325
  Transmission Date: 20160526
  Serious: No
  Sender: FDA-Public Use
  Company Number: US-WEST-WARD PHARMACEUTICALS CORP.-US-H14001-15-02075

PATIENT
  Age: 66 Year
  Sex: Male
  Weight: 70.37 kg

DRUGS (2)
  1. PREDNISONE. [Suspect]
     Active Substance: PREDNISONE
     Indication: ARTHRALGIA
     Route: 065
     Dates: start: 201511
  2. PREDNISONE. [Suspect]
     Active Substance: PREDNISONE
     Indication: BACK PAIN

REACTIONS (3)
  - Pain [Not Recovered/Not Resolved]
  - Fatigue [Not Recovered/Not Resolved]
  - Nausea [Not Recovered/Not Resolved]

NARRATIVE: CASE EVENT DATE: 201511
